FAERS Safety Report 13801846 (Version 1)
Quarter: 2017Q3

REPORT INFORMATION
  Report Type: Spontaneous
  Country: US (occurrence: US)
  Receive Date: 20170727
  Receipt Date: 20170727
  Transmission Date: 20171127
  Serious: Yes (Other)
  Sender: FDA-Public Use
  Company Number: US-PFIZER INC-2017323779

PATIENT
  Sex: Female

DRUGS (1)
  1. RELPAX [Suspect]
     Active Substance: ELETRIPTAN HYDROBROMIDE
     Dosage: 40 MG, UNK
     Dates: end: 201707

REACTIONS (5)
  - Device leakage [Unknown]
  - Dehydration [Unknown]
  - Migraine [Unknown]
  - Fluid intake reduced [Unknown]
  - Decreased appetite [Unknown]

NARRATIVE: CASE EVENT DATE: 201707
